FAERS Safety Report 6445961-4 (Version None)
Quarter: 2009Q4

REPORT INFORMATION
  Report Type: 
  Country: None (occurrence: None)
  Receive Date: 20091119
  Receipt Date: 20090401
  Transmission Date: 20100525
  Serious: No
  Sender: FDA-Public Use
  Company Number: A0776609A

PATIENT
  Age: 54 Year
  Sex: Female

DRUGS (2)
  1. WELLBUTRIN SR [Suspect]
     Dosage: 100MG PER DAY
     Route: 048
     Dates: start: 20090301
  2. LAMICTAL [Concomitant]

REACTIONS (1)
  - BLOOD PRESSURE INCREASED [None]
